FAERS Safety Report 12355931 (Version 1)
Quarter: 2016Q2

REPORT INFORMATION
  Report Type: Spontaneous
  Country: FR (occurrence: FR)
  Receive Date: 20160511
  Receipt Date: 20160511
  Transmission Date: 20160815
  Serious: Yes (Life-Threatening)
  Sender: FDA-Public Use
  Company Number: FR-PFIZER INC-2016244985

PATIENT
  Age: 73 Year
  Sex: Female
  Weight: 85.5 kg

DRUGS (12)
  1. TRACRIUM [Suspect]
     Active Substance: ATRACURIUM BESYLATE
     Indication: NEUROMUSCULAR BLOCKING THERAPY
     Dosage: 0.452 MG/KG/HOUR (7 ML/HOUR)
     Route: 041
     Dates: start: 20160412, end: 20160417
  2. SALBUTAMOL [Concomitant]
     Active Substance: ALBUTEROL
     Dosage: UNK
     Route: 042
     Dates: start: 20160412, end: 20160417
  3. FENTANYL. [Concomitant]
     Active Substance: FENTANYL
     Indication: SEDATION
     Dosage: 1.29 UG/KG/HOUR
     Dates: start: 20160412, end: 20160414
  4. LASILIX /00032601/ [Concomitant]
     Active Substance: FUROSEMIDE
     Indication: FLUID OVERLOAD
     Dosage: 80 MG/8 H
     Route: 042
     Dates: start: 20160417
  5. BRICANYL [Concomitant]
     Active Substance: TERBUTALINE SULFATE
     Dosage: UNK
     Route: 055
     Dates: end: 20160412
  6. TAZOCILLINE [Concomitant]
     Active Substance: PIPERACILLIN SODIUM\TAZOBACTAM SODIUM
     Dosage: UNK
     Dates: start: 20160416
  7. SOLU-MEDROL [Suspect]
     Active Substance: METHYLPREDNISOLONE SODIUM SUCCINATE
     Indication: ASTHMA
     Dosage: 1 MG/KG DAILY (80 MG DAILY)
     Route: 041
     Dates: start: 20160412, end: 20160417
  8. HYPNOVEL /00634101/ [Concomitant]
     Active Substance: MIDAZOLAM\MIDAZOLAM HYDROCHLORIDE
     Indication: SEDATION
     Dosage: 8 MG/HOUR
     Dates: start: 20160412, end: 20160414
  9. HYPNOVEL /00634101/ [Concomitant]
     Active Substance: MIDAZOLAM\MIDAZOLAM HYDROCHLORIDE
     Dosage: 4 MG/HOUR
     Dates: start: 20160414, end: 20160416
  10. SOLU-MEDROL [Suspect]
     Active Substance: METHYLPREDNISOLONE SODIUM SUCCINATE
     Indication: RESPIRATORY DISTRESS
  11. ATROVENT [Concomitant]
     Active Substance: IPRATROPIUM BROMIDE
     Dosage: UNK
     Route: 055
     Dates: end: 20160412
  12. FENTANYL. [Concomitant]
     Active Substance: FENTANYL
     Dosage: 0.613 UG/KG/HOUR
     Dates: start: 20160414, end: 20160416

REACTIONS (3)
  - Acute kidney injury [Recovering/Resolving]
  - Rhabdomyolysis [Not Recovered/Not Resolved]
  - Hepatocellular injury [Not Recovered/Not Resolved]

NARRATIVE: CASE EVENT DATE: 20160417
